FAERS Safety Report 12087554 (Version 1)
Quarter: 2016Q1

REPORT INFORMATION
  Report Type: Spontaneous
  Country: US (occurrence: US)
  Receive Date: 20160217
  Receipt Date: 20160217
  Transmission Date: 20160526
  Serious: Yes (Hospitalization, Other)
  Sender: FDA-Public Use
  Company Number: US-TAKEDA-TPA2012A05506

PATIENT
  Age: 90 Year
  Sex: Female

DRUGS (7)
  1. PREVACID [Suspect]
     Active Substance: LANSOPRAZOLE
     Dosage: UNK
     Route: 048
  2. PREVACID [Suspect]
     Active Substance: LANSOPRAZOLE
     Dosage: UNK
     Route: 048
  3. OXYCOD//OXYTOCIN [Concomitant]
     Dosage: UNK
  4. TRAMADOL. [Concomitant]
     Active Substance: TRAMADOL
     Dosage: UNK
  5. PREVACID [Suspect]
     Active Substance: LANSOPRAZOLE
     Indication: OESOPHAGEAL DISORDER
     Dosage: 30 MG, QD
     Route: 048
     Dates: start: 201203
  6. PREVACID [Suspect]
     Active Substance: LANSOPRAZOLE
     Dosage: UNK, QD
     Route: 048
     Dates: end: 20150908
  7. PREVACID [Suspect]
     Active Substance: LANSOPRAZOLE
     Indication: GASTROOESOPHAGEAL REFLUX DISEASE
     Dosage: UNK, UNK
     Route: 048
     Dates: start: 201403

REACTIONS (12)
  - Off label use [Not Recovered/Not Resolved]
  - Chest pain [Recovering/Resolving]
  - Malaise [Recovering/Resolving]
  - Incorrect drug administration duration [Not Recovered/Not Resolved]
  - Tremor [Not Recovered/Not Resolved]
  - Spinal fracture [Recovering/Resolving]
  - Diarrhoea [Not Recovered/Not Resolved]
  - Nerve injury [Unknown]
  - Dysgeusia [Not Recovered/Not Resolved]
  - Gastric disorder [Recovering/Resolving]
  - Pain in extremity [Recovering/Resolving]
  - Drug ineffective for unapproved indication [Unknown]

NARRATIVE: CASE EVENT DATE: 201203
